FAERS Safety Report 12589772 (Version 1)
Quarter: 2016Q3

REPORT INFORMATION
  Report Type: Spontaneous
  Country: US (occurrence: US)
  Receive Date: 20160725
  Receipt Date: 20160725
  Transmission Date: 20161109
  Serious: No
  Sender: FDA-Public Use
  Company Number: US-PFIZER INC-2016328879

PATIENT
  Age: 76 Year
  Sex: Female
  Weight: 62.14 kg

DRUGS (2)
  1. ADVIL [Suspect]
     Active Substance: IBUPROFEN
     Indication: ARTHRITIS
     Dosage: 200MG TABLET ONCE
     Dates: start: 201606
  2. VERAPAMIL ER [Concomitant]
     Active Substance: VERAPAMIL HYDROCHLORIDE
     Indication: BLOOD PRESSURE ABNORMAL
     Dosage: 200MG ONCE AT BEDTIME

REACTIONS (2)
  - Nightmare [Unknown]
  - Disorientation [Unknown]

NARRATIVE: CASE EVENT DATE: 201606
